FAERS Safety Report 8834549 (Version 2)
Quarter: 2014Q2

REPORT INFORMATION
  Report Type: Spontaneous
  Country: US (occurrence: US)
  Receive Date: 20121010
  Receipt Date: 20131017
  Transmission Date: 20141212
  Serious: Yes (Hospitalization, Other)
  Sender: FDA-Public Use
  Company Number: US-PFIZER INC-2012247500

PATIENT
  Age: 39 Year
  Sex: Male

DRUGS (6)
  1. LAMOTRIGINE [Suspect]
     Indication: EPILEPSY
     Dosage: 600 MG, UNK
     Dates: start: 2006, end: 200911
  2. LAMOTRIGINE [Suspect]
     Dosage: 300 MG/D
     Dates: start: 201005, end: 20110617
  3. LAMOTRIGINE [Suspect]
     Dosage: UNK
     Dates: end: 201112
  4. PHENYTOIN [Suspect]
     Indication: EPILEPSY
     Dosage: UNK
     Dates: start: 1985, end: 2006
  5. PHENYTOIN [Suspect]
     Dosage: UNK
     Dates: start: 200911, end: 201005
  6. PHENYTOIN [Suspect]
     Dosage: UNK
     Dates: start: 20110617

REACTIONS (3)
  - Lupus-like syndrome [Unknown]
  - Drug ineffective [Unknown]
  - Dizziness [Unknown]
